FAERS Safety Report 8024016-1 (Version None)
Quarter: 2012Q1

REPORT INFORMATION
  Report Type: 
  Country: None (occurrence: None)
  Receive Date: 20120105
  Receipt Date: 20111227
  Transmission Date: 20120608
  Serious: Yes (Other)
  Sender: FDA-Public Use
  Company Number: US-JNJFOC-20120100739

PATIENT
  Sex: Female

DRUGS (11)
  1. DOXORUBICIN HCL [Suspect]
     Route: 042
  2. DOXORUBICIN HCL [Suspect]
     Route: 042
  3. CYCLOPHOSPHAMIDE [Suspect]
     Route: 065
  4. TRASTUZUMAB [Suspect]
     Route: 065
  5. CYCLOPHOSPHAMIDE [Suspect]
     Indication: BREAST CANCER
     Route: 065
  6. CYCLOPHOSPHAMIDE [Suspect]
     Route: 065
  7. CYCLOPHOSPHAMIDE [Suspect]
     Route: 065
  8. DOXORUBICIN HCL [Suspect]
     Indication: BREAST CANCER
     Route: 042
  9. PACLITAXEL [Suspect]
     Indication: BREAST CANCER
     Route: 065
  10. DOXORUBICIN HCL [Suspect]
     Route: 042
  11. TRASTUZUMAB [Suspect]
     Indication: BREAST CANCER
     Dosage: INITIAL LOADING DOSE
     Route: 065

REACTIONS (1)
  - NEOPLASM MALIGNANT [None]
